FAERS Safety Report 12631717 (Version 2)
Quarter: 2016Q3

REPORT INFORMATION
  Report Type: Spontaneous
  Country: US (occurrence: US)
  Receive Date: 20160808
  Receipt Date: 20160808
  Transmission Date: 20161109
  Serious: No
  Sender: FDA-Public Use
  Company Number: US-BEH-2016060786

PATIENT
  Sex: Female
  Weight: 149 kg

DRUGS (28)
  1. EPIPEN [Concomitant]
     Active Substance: EPINEPHRINE
  2. PREDNISONE. [Concomitant]
     Active Substance: PREDNISONE
  3. MIRALAX [Concomitant]
     Active Substance: POLYETHYLENE GLYCOL 3350
  4. ONDANSETRON [Concomitant]
     Active Substance: ONDANSETRON
  5. NITROFURANTOIN. [Concomitant]
     Active Substance: NITROFURANTOIN
  6. SERTRALINE [Concomitant]
     Active Substance: SERTRALINE HYDROCHLORIDE
  7. HIZENTRA [Suspect]
     Active Substance: HUMAN IMMUNOGLOBULIN G
     Indication: HYPOGAMMAGLOBULINAEMIA
     Route: 058
  8. ACETAMINOPHEN. [Concomitant]
     Active Substance: ACETAMINOPHEN
  9. LISINOPRIL. [Concomitant]
     Active Substance: LISINOPRIL
  10. SPRINTEC [Concomitant]
     Active Substance: ETHINYL ESTRADIOL\NORGESTIMATE
  11. VITAMIN B-2 [Concomitant]
  12. MOTRIN [Concomitant]
     Active Substance: IBUPROFEN
  13. ADVAIR HFA [Concomitant]
     Active Substance: FLUTICASONE PROPIONATE\SALMETEROL XINAFOATE
  14. ALBUTEROL. [Concomitant]
     Active Substance: ALBUTEROL
  15. DIPHENHYDRAMINE. [Concomitant]
     Active Substance: DIPHENHYDRAMINE
  16. CLONIDINE. [Concomitant]
     Active Substance: CLONIDINE
  17. METFORMIN [Concomitant]
     Active Substance: METFORMIN HYDROCHLORIDE
  18. OMEPRAZOLE. [Concomitant]
     Active Substance: OMEPRAZOLE
  19. VITAMIN C [Concomitant]
     Active Substance: ASCORBIC ACID
  20. FLONASE [Concomitant]
     Active Substance: FLUTICASONE PROPIONATE
  21. CEFDINIR. [Concomitant]
     Active Substance: CEFDINIR
  22. DDAVP [Concomitant]
     Active Substance: DESMOPRESSIN ACETATE
  23. PROMETHAZINE [Concomitant]
     Active Substance: PROMETHAZINE\PROMETHAZINE HYDROCHLORIDE
  24. LORAZEPAM. [Concomitant]
     Active Substance: LORAZEPAM
  25. LIDOCAINE/PRILOCAINE [Concomitant]
     Active Substance: LIDOCAINE\PRILOCAINE
  26. ABILIFY [Concomitant]
     Active Substance: ARIPIPRAZOLE
  27. TRAZODONE [Concomitant]
     Active Substance: TRAZODONE HYDROCHLORIDE
  28. METOCLOPRAMIDE. [Concomitant]
     Active Substance: METOCLOPRAMIDE

REACTIONS (1)
  - Infusion site nodule [Unknown]
